FAERS Safety Report 6108292-8 (Version None)
Quarter: 2009Q1

REPORT INFORMATION
  Report Type: 
  Country: None (occurrence: None)
  Receive Date: 20090309
  Receipt Date: 20090219
  Transmission Date: 20090719
  Serious: Yes (Life-Threatening, Hospitalization, Other)
  Sender: FDA-Public Use
  Company Number: JP-ABBOTT-09P-087-0496980-00

PATIENT
  Age: 8 Month
  Sex: Male
  Weight: 6 kg

DRUGS (11)
  1. CLARITH DRY SYRUP [Suspect]
     Indication: BRONCHITIS
     Route: 048
     Dates: start: 20080826, end: 20080902
  2. CLARITH DRY SYRUP [Suspect]
     Route: 048
     Dates: start: 20080903, end: 20080922
  3. CARBOCISTEINE [Concomitant]
     Indication: BRONCHITIS
     Route: 048
     Dates: start: 20080628
  4. AMBROXOL HYDROCHLORIDE [Concomitant]
     Indication: BRONCHITIS
     Route: 048
     Dates: start: 20080628
  5. PROCATEROL HCL [Concomitant]
     Indication: BRONCHITIS
     Route: 048
     Dates: start: 20080707, end: 20081010
  6. PRANLUKAST HYDRATE [Concomitant]
     Indication: BRONCHITIS
     Route: 048
     Dates: start: 20080707
  7. THEOPHYLLINE [Concomitant]
     Indication: APNOEA
     Route: 048
     Dates: start: 20080703, end: 20081004
  8. PHENOBARBITAL TAB [Concomitant]
     Indication: CEREBRAL PALSY
     Route: 048
     Dates: start: 20080906
  9. FERRIC PYRO PHOSPHATE, SOLUBLE [Concomitant]
     Indication: HYPOCHROMIC ANAEMIA
     Route: 048
     Dates: start: 20080830
  10. SALBUTAMOL SULFATE [Concomitant]
     Indication: BRONCHITIS
     Route: 055
     Dates: start: 20080628, end: 20081009
  11. SODIUM CROMOGLICATE [Concomitant]
     Indication: BRONCHITIS
     Route: 055
     Dates: start: 20080628, end: 20081009

REACTIONS (2)
  - COAGULOPATHY [None]
  - VITAMIN K DEFICIENCY [None]
